FAERS Safety Report 6721496-6 (Version None)
Quarter: 2010Q2

REPORT INFORMATION
  Report Type: 
  Country: None (occurrence: None)
  Receive Date: 20100512
  Receipt Date: 20100503
  Transmission Date: 20101027
  Serious: Yes (Hospitalization)
  Sender: FDA-Public Use
  Company Number: CA-JNJFOC-20100501200

PATIENT
  Sex: Male
  Weight: 71 kg

DRUGS (2)
  1. REMICADE [Suspect]
     Indication: CROHN'S DISEASE
     Dosage: DOSE ^Q 6^
     Route: 042
  2. REMICADE [Suspect]
     Dosage: DOSE ^Q 6^
     Route: 042

REACTIONS (1)
  - SUICIDE ATTEMPT [None]
